FAERS Safety Report 9220834 (Version 3)
Quarter: 2013Q2

REPORT INFORMATION
  Report Type: Spontaneous
  Country: US (occurrence: US)
  Receive Date: 20130409
  Receipt Date: 20130529
  Transmission Date: 20140414
  Serious: No
  Sender: FDA-Public Use
  Company Number: US-PFIZER INC-2013107516

PATIENT
  Age: 78 Year
  Sex: Male

DRUGS (7)
  1. LATANOPROST [Suspect]
     Dosage: 1 GTT, 1X/DAY, QHS
     Route: 047
  2. LATANOPROST [Suspect]
  3. SIMVASTATIN [Concomitant]
     Indication: BLOOD CHOLESTEROL INCREASED
     Dosage: UNK
  4. FLOMAX [Concomitant]
     Indication: BENIGN PROSTATIC HYPERPLASIA
     Dosage: UNK
  5. FLEXERIL [Concomitant]
     Indication: MUSCLE DISORDER
     Dosage: UNK
  6. METOPROLOL ER SUCCINATE [Concomitant]
     Indication: BLOOD PRESSURE ABNORMAL
     Dosage: UNK
  7. FLONASE [Concomitant]
     Dosage: UNK

REACTIONS (4)
  - Eye pain [Recovered/Resolved]
  - Burning sensation [Recovered/Resolved]
  - Product quality issue [Unknown]
  - Vision blurred [Recovered/Resolved]
